FAERS Safety Report 7525233-7 (Version None)
Quarter: 2011Q2

REPORT INFORMATION
  Report Type: 
  Country: None (occurrence: None)
  Receive Date: 20110602
  Receipt Date: 20110602
  Transmission Date: 20111010
  Serious: Yes (Death)
  Sender: FDA-Public Use
  Company Number: None

PATIENT
  Age: 51 Year
  Sex: Female
  Weight: 73 kg

DRUGS (10)
  1. LISINOPRIL [Concomitant]
  2. ASPIRIN [Suspect]
  3. XANAX [Suspect]
  4. METOPROLOL [Concomitant]
  5. M.V.I. [Concomitant]
  6. ALLOPURINOL [Concomitant]
  7. DYAZIDE [Concomitant]
  8. OMEGA 3 FATTY ACIDS [Concomitant]
  9. SYNTHROID [Suspect]
  10. PRADAXA [Suspect]

REACTIONS (4)
  - TOXIC EPIDERMAL NECROLYSIS [None]
  - HYPOTENSION [None]
  - SEPSIS [None]
  - CARDIAC ARREST [None]
